FAERS Safety Report 5558088-0 (Version None)
Quarter: 2007Q4

REPORT INFORMATION
  Report Type: 
  Country: None (occurrence: None)
  Receive Date: 20071214
  Receipt Date: 20071212
  Transmission Date: 20080405
  Serious: Yes (Hospitalization)
  Sender: FDA-Public Use
  Company Number: AU-SANOFI-SYNTHELABO-D01200708468

PATIENT
  Sex: Male
  Weight: 88.9 kg

DRUGS (8)
  1. DEXAMETHASONE TAB [Concomitant]
     Dates: start: 20070903
  2. PRAMIN [Concomitant]
     Dates: start: 20070907
  3. XANAX [Concomitant]
     Dates: start: 20070601
  4. TRAMADOL HCL [Concomitant]
     Dates: start: 20070601
  5. OXALIPLATIN [Suspect]
     Route: 042
     Dates: start: 20071126, end: 20071126
  6. LEUCOVORIN CALCIUM [Suspect]
     Route: 042
     Dates: start: 20071126, end: 20071126
  7. FLUOROURACIL [Suspect]
     Dosage: 400 MG/M?, IV BOLUS D1+D2 FOLLOWED BY 5-FU 2400 MG/M? OVER 46-HOUR CONTINUOUS INFUSION.
     Route: 042
     Dates: start: 20071126, end: 20071126
  8. SR57746 OR PLACEBO [Suspect]
     Route: 048
     Dates: start: 20070903, end: 20071126

REACTIONS (1)
  - DIABETIC KETOACIDOSIS [None]
